FAERS Safety Report 4807895-8 (Version None)
Quarter: 2005Q4

REPORT INFORMATION
  Report Type: 
  Country: None (occurrence: None)
  Receive Date: 20051020
  Receipt Date: 20050926
  Transmission Date: 20060501
  Serious: Yes (Life-Threatening)
  Sender: FDA-Public Use
  Company Number: MEDI-0003602

PATIENT
  Age: 63 Year
  Sex: Female
  Weight: 93 kg

DRUGS (7)
  1. ETHYOL [Suspect]
     Dosage: 400 MG, QD, INTRAVENOUS
     Route: 042
     Dates: start: 20050524, end: 20050701
  2. ESIDRIX [Concomitant]
  3. TENORDATE (NIFEDIPINE, ATENOLOL) [Concomitant]
  4. ZOPREN (ONDANSETRON HYDROCHLORIDE) [Concomitant]
  5. RADIATION THERAPY [Concomitant]
  6. METHYLPREDNISOLONE HEMISUCCINATE (METHYLPREDNISONE HEMISUCCINATE) [Concomitant]
  7. ALLOPURINOL [Concomitant]

REACTIONS (3)
  - CONJUNCTIVITIS [None]
  - HYPOALBUMINAEMIA [None]
  - TOXIC SKIN ERUPTION [None]
